FAERS Safety Report 19353986 (Version 1)
Quarter: 2021Q2

REPORT INFORMATION
  Report Type: Spontaneous
  Country: FR (occurrence: FR)
  Receive Date: 20210531
  Receipt Date: 20210531
  Transmission Date: 20210717
  Serious: Yes (Other)
  Sender: FDA-Public Use
  Company Number: NVSC2021FR117277

PATIENT
  Age: 77 Year
  Sex: Female
  Weight: 82.2 kg

DRUGS (4)
  1. EUCREAS [Suspect]
     Active Substance: METFORMIN HYDROCHLORIDE\VILDAGLIPTIN
     Indication: DIABETES MELLITUS
     Dosage: 2 DF
     Route: 048
     Dates: end: 20210504
  2. RAMIPRIL. [Suspect]
     Active Substance: RAMIPRIL
     Dosage: UNK
  3. RAMIPRIL. [Suspect]
     Active Substance: RAMIPRIL
     Indication: HYPERTENSION
     Dosage: 5 MG
     Route: 048
     Dates: end: 20210502
  4. RAMIPRIL. [Suspect]
     Active Substance: RAMIPRIL
     Dosage: 2.5 MG
     Route: 048
     Dates: end: 20210502

REACTIONS (2)
  - Tongue oedema [Recovered/Resolved]
  - Idiopathic angioedema [Recovered/Resolved]

NARRATIVE: CASE EVENT DATE: 20210502
